FAERS Safety Report 4534197-X (Version None)
Quarter: 2004Q4

REPORT INFORMATION
  Report Type: 
  Country: None (occurrence: None)
  Receive Date: 20041214
  Receipt Date: 20040830
  Transmission Date: 20050328
  Serious: No
  Sender: FDA-Public Use
  Company Number: 2004232445US

PATIENT
  Age: 32 Year
  Sex: Male
  Weight: 99.8 kg

DRUGS (7)
  1. BEXTRA [Suspect]
     Dates: start: 20040826
  2. LIPITOR [Concomitant]
  3. AVANDIA [Concomitant]
  4. HYDROCHLOROTHIAZIDE [Concomitant]
  5. LANTUS [Concomitant]
  6. PRINIVIL [Concomitant]
  7. GLUCOPHAGE [Concomitant]

REACTIONS (4)
  - CHEST DISCOMFORT [None]
  - HEADACHE [None]
  - MUSCLE CRAMP [None]
  - MUSCLE SPASMS [None]
